FAERS Safety Report 8491174-4 (Version None)
Quarter: 2012Q3

REPORT INFORMATION
  Report Type: 
  Country: None (occurrence: None)
  Receive Date: 20120706
  Receipt Date: 20120627
  Transmission Date: 20120928
  Serious: Yes (Other)
  Sender: FDA-Public Use
  Company Number: JP-VERTEX PHARMACEUTICALS INC.-AE-2012-007657

PATIENT
  Age: 58 Year
  Sex: Male

DRUGS (9)
  1. EPADEL S [Concomitant]
     Route: 048
  2. TELAVIC (TELAPREVIR) [Suspect]
     Indication: HEPATITIS C
     Route: 048
     Dates: start: 20120317, end: 20120604
  3. LIVALO [Concomitant]
     Route: 048
  4. CLARITIN REDITABS [Concomitant]
     Route: 048
  5. PEGINTERFERON ALFA-2B [Concomitant]
     Indication: HEPATITIS C
     Route: 058
     Dates: start: 20120317
  6. HALTHROW OD [Concomitant]
     Route: 048
  7. RIBAVIRIN [Concomitant]
     Indication: HEPATITIS C
     Route: 048
     Dates: start: 20120317, end: 20120330
  8. RIBAVIRIN [Concomitant]
     Route: 048
     Dates: start: 20120331
  9. FEROTYM [Concomitant]
     Route: 048

REACTIONS (3)
  - ANAEMIA [None]
  - PLATELET COUNT DECREASED [None]
  - RASH [None]
